FAERS Safety Report 7688883-3 (Version None)
Quarter: 2011Q3

REPORT INFORMATION
  Report Type: 
  Country: None (occurrence: None)
  Receive Date: 20110817
  Receipt Date: 20110805
  Transmission Date: 20111222
  Serious: Yes (Other)
  Sender: FDA-Public Use
  Company Number: PHHY2011US61543

PATIENT
  Sex: Female

DRUGS (23)
  1. VYTORIN [Concomitant]
     Dosage: 1 DF, ONCE EACH DAY
     Dates: start: 20110329
  2. GILENYA [Suspect]
     Indication: MULTIPLE SCLEROSIS
     Dosage: 0.5 MG, QD
     Route: 048
     Dates: start: 20110301
  3. LIDODERM [Concomitant]
     Dosage: 5 %, ONCE EACH DAY
     Dates: start: 20110726
  4. CYMBALTA [Concomitant]
     Dosage: 30 MG, TWO AT BEDTIME
     Dates: start: 20110726
  5. MELOXICAM [Concomitant]
     Dosage: 7.5 MG,DAILY
     Dates: start: 20090204
  6. ASCORBIC ACID [Concomitant]
     Dosage: 500 MG, DAILY
     Dates: start: 20110329
  7. DITROPAN [Concomitant]
     Dosage: 5 MG, DAILY
     Dates: start: 20110329
  8. ASPIRIN [Concomitant]
     Dosage: 81 MG,QD
     Dates: start: 20110329
  9. BACLOFEN [Concomitant]
     Dosage: 1 DF, AT BEDTIME
     Dates: start: 20101108
  10. ANTICOAGULANTS [Concomitant]
  11. PLAVIX [Concomitant]
     Dosage: 75 MG, ONCE EACH DAY
     Dates: start: 20110329
  12. LOSARTAN POTASSIUM AND HYDROCHLOROTHIAZIDE [Concomitant]
     Dosage: 1 DF, DAILY
     Dates: start: 20110329
  13. GLYCOLAX [Concomitant]
     Dosage: 1 DF, TWICE DAILY PRN
     Dates: start: 20110329
  14. ZINC [Concomitant]
     Dosage: 1 DF, DAILY
     Dates: start: 20101207
  15. GLUCOPHAGE [Concomitant]
     Dosage: 500 MG, 4 TAB PER DAY
     Dates: start: 20101108
  16. DARVOCET-N 50 [Concomitant]
     Dosage: 1 DF, Q6H,PRN
     Dates: start: 20101108
  17. NORVASC [Concomitant]
     Dosage: 5 MG,ONCE EACH DAY
     Dates: start: 20110329
  18. ZANAFLEX [Concomitant]
     Dosage: 1 DF, TID
     Dates: start: 20101108
  19. POTASSIUM [Concomitant]
     Dosage: 1 DF, DAILY
     Dates: start: 20091021
  20. COQ10 [Concomitant]
     Dosage: 1 DF, DAILY
     Dates: start: 20091021
  21. NEURONTIN [Concomitant]
     Dosage: 300 MG, TID
     Dates: start: 20110726
  22. PANTOPRAZOLE [Concomitant]
     Dosage: 40 MG, DAILY
     Dates: start: 20110329
  23. RESTASIS [Concomitant]
     Dosage: UNK
     Dates: start: 20101108

REACTIONS (13)
  - PRURITUS [None]
  - OCULAR HYPERAEMIA [None]
  - HERPES ZOSTER [None]
  - BLISTER [None]
  - EYE DISORDER [None]
  - EYELID PTOSIS [None]
  - HEADACHE [None]
  - VAGINITIS BACTERIAL [None]
  - HYPOAESTHESIA [None]
  - VISION BLURRED [None]
  - EYE PAIN [None]
  - FACIAL PAIN [None]
  - EYE SWELLING [None]
